FAERS Safety Report 9376909 (Version 1)
Quarter: 2013Q3

REPORT INFORMATION
  Report Type: Spontaneous
  Country: US (occurrence: US)
  Receive Date: 20130701
  Receipt Date: 20130701
  Transmission Date: 20140515
  Serious: Yes (Other)
  Sender: FDA-Public Use
  Company Number: US-ACCORD-018287

PATIENT
  Age: 70 Year
  Sex: Female
  Weight: 76.36 kg

DRUGS (4)
  1. SIMVASTATIN [Suspect]
     Indication: BLOOD CHOLESTEROL INCREASED
     Route: 048
     Dates: start: 201304, end: 20130605
  2. METOPROLOL [Concomitant]
  3. COUMADIN [Concomitant]
  4. FLECAINIDE [Concomitant]

REACTIONS (2)
  - Chest discomfort [Recovered/Resolved]
  - Blood pressure increased [Recovered/Resolved]
